FAERS Safety Report 12594881 (Version 2)
Quarter: 2019Q4

REPORT INFORMATION
  Report Type: Spontaneous
  Country: US (occurrence: US)
  Receive Date: 20160726
  Receipt Date: 20191024
  Transmission Date: 20200122
  Serious: Yes (Death, Other)
  Sender: FDA-Public Use
  Company Number: US-PFIZER INC-2016352289

PATIENT
  Age: 76 Year
  Sex: Male

DRUGS (9)
  1. REVATIO [Suspect]
     Active Substance: SILDENAFIL CITRATE
     Dosage: 20 MG, AS NEEDED
     Route: 048
     Dates: start: 20131002, end: 2015
  2. ADVIL [Concomitant]
     Active Substance: IBUPROFEN
     Indication: PAIN
     Dosage: UNK PERIODICALLY
     Dates: start: 2011, end: 2016
  3. VIAGRA [Suspect]
     Active Substance: SILDENAFIL CITRATE
     Dosage: 0.5 DF, AS NEEDED (PRN)
     Route: 048
     Dates: start: 20081210, end: 201101
  4. VIAGRA [Suspect]
     Active Substance: SILDENAFIL CITRATE
     Dosage: 0.5 DF, AS NEEDED (PRN)
     Route: 048
     Dates: start: 20110110, end: 20131002
  5. TERAZOSIN [Concomitant]
     Active Substance: TERAZOSIN HYDROCHLORIDE
     Indication: PROSTATIC DISORDER
     Dosage: 2 MG, 2 CAPSULES EVERY DAY AT BED TIME, 1 CAPSULE EVERY MORNING
     Dates: start: 20060403, end: 201301
  6. REVATIO [Suspect]
     Active Substance: SILDENAFIL CITRATE
     Indication: ERECTILE DYSFUNCTION
     Dosage: UNK
     Route: 048
     Dates: start: 201310, end: 2015
  7. LEVITRA [Concomitant]
     Active Substance: VARDENAFIL HYDROCHLORIDE
     Indication: ERECTILE DYSFUNCTION
     Dosage: 2.5 MG, AS NEEDED
     Dates: start: 20090515, end: 201003
  8. VIAGRA [Suspect]
     Active Substance: SILDENAFIL CITRATE
     Indication: ERECTILE DYSFUNCTION
     Dosage: UNK, REGULARLY
     Route: 048
     Dates: end: 200905
  9. VIAGRA [Suspect]
     Active Substance: SILDENAFIL CITRATE
     Dosage: UNK, REGULARLY
     Route: 048
     Dates: start: 201002, end: 201310

REACTIONS (5)
  - Anxiety [Unknown]
  - Emotional distress [Unknown]
  - Desmoplastic melanoma [Fatal]
  - Neurofibrosarcoma [Unknown]
  - Malignant melanoma stage IV [Unknown]

NARRATIVE: CASE EVENT DATE: 201406
